FAERS Safety Report 9804024 (Version 3)
Quarter: 2014Q1

REPORT INFORMATION
  Report Type: Report from Study
  Country: DE (occurrence: DE)
  Receive Date: 20140108
  Receipt Date: 20140121
  Transmission Date: 20141002
  Serious: Yes (Hospitalization)
  Sender: FDA-Public Use
  Company Number: PHHY2013DE074658

PATIENT
  Sex: Male

DRUGS (2)
  1. EXTAVIA [Suspect]
     Indication: MULTIPLE SCLEROSIS
     Dosage: 125 UG/ML, QOD
     Route: 058
     Dates: start: 20130702
  2. EXTAVIA [Suspect]
     Dosage: 250 UG/ML, QOD
     Route: 058
     Dates: end: 20140107

REACTIONS (1)
  - Tinnitus [Not Recovered/Not Resolved]
